FAERS Safety Report 17877027 (Version 1)
Quarter: 2020Q2

REPORT INFORMATION
  Report Type: Report from Study
  Country: US (occurrence: US)
  Receive Date: 20200609
  Receipt Date: 20200609
  Transmission Date: 20200714
  Serious: Yes (Hospitalization)
  Sender: FDA-Public Use
  Company Number: US-JNJFOC-20200601807

PATIENT
  Sex: Male

DRUGS (11)
  1. SPRAVATO [Suspect]
     Active Substance: ESKETAMINE
     Indication: DEPRESSION
  2. SPRAVATO [Suspect]
     Active Substance: ESKETAMINE
     Dates: start: 20191216, end: 20191216
  3. SPRAVATO [Suspect]
     Active Substance: ESKETAMINE
     Dates: start: 20200519, end: 20200519
  4. SPRAVATO [Suspect]
     Active Substance: ESKETAMINE
     Dates: start: 20200512, end: 20200512
  5. SPRAVATO [Suspect]
     Active Substance: ESKETAMINE
     Dates: start: 20200207, end: 20200207
  6. SPRAVATO [Suspect]
     Active Substance: ESKETAMINE
     Dates: start: 20200122, end: 20200122
  7. SPRAVATO [Suspect]
     Active Substance: ESKETAMINE
     Dates: start: 20200129, end: 20200129
  8. SPRAVATO [Suspect]
     Active Substance: ESKETAMINE
     Dates: start: 20200521, end: 20200521
  9. SPRAVATO [Suspect]
     Active Substance: ESKETAMINE
     Dates: start: 20200103, end: 20200103
  10. SPRAVATO [Suspect]
     Active Substance: ESKETAMINE
     Dates: start: 20200110, end: 20200110
  11. SPRAVATO [Suspect]
     Active Substance: ESKETAMINE
     Dates: start: 20200514, end: 20200514

REACTIONS (1)
  - Hospitalisation [Unknown]
